FAERS Safety Report 4868834-7 (Version None)
Quarter: 2005Q4

REPORT INFORMATION
  Report Type: 
  Country: None (occurrence: None)
  Receive Date: 20051223
  Receipt Date: 20051212
  Transmission Date: 20060501
  Serious: Yes (Other)
  Sender: FDA-Public Use
  Company Number: 2005167751

PATIENT
  Sex: Male

DRUGS (5)
  1. EPIRUBICIN [Suspect]
     Indication: B-CELL LYMPHOMA
     Dosage: INTRAVENOUS
     Route: 042
     Dates: start: 20050101
  2. VINCRISTINE [Suspect]
     Indication: B-CELL LYMPHOMA
     Dosage: INTRAVENOUS
     Route: 042
     Dates: start: 20050101
  3. CYCLOPHOSPHAMIDE [Suspect]
     Indication: B-CELL LYMPHOMA
     Dosage: INTRAVENOUS
     Route: 042
     Dates: start: 20050101
  4. MABTHERA (RITUXIMAB) [Suspect]
     Indication: B-CELL LYMPHOMA
     Dosage: INTRAVENOUS
     Route: 042
     Dates: start: 20050101
  5. PREDNISONE [Concomitant]

REACTIONS (4)
  - MUSCLE ATROPHY [None]
  - MUSCULAR WEAKNESS [None]
  - PARALYSIS [None]
  - SENSORY DISTURBANCE [None]
